FAERS Safety Report 21861067 (Version 1)
Quarter: 2023Q1

REPORT INFORMATION
  Report Type: Spontaneous
  Country: US (occurrence: US)
  Receive Date: 20230113
  Receipt Date: 20230113
  Transmission Date: 20230417
  Serious: Yes (Disabling, Other)
  Sender: FDA-Public Use
  Company Number: US-GSKCCFUS-Case-01596598_AE-90219

PATIENT

DRUGS (1)
  1. VENTOLIN HFA [Suspect]
     Active Substance: ALBUTEROL SULFATE
     Indication: Asthma late onset
     Dosage: UNK
     Route: 055

REACTIONS (10)
  - Thrombosis [Not Recovered/Not Resolved]
  - Disability [Not Recovered/Not Resolved]
  - Respiration abnormal [Unknown]
  - Influenza [Recovered/Resolved]
  - Cardiac disorder [Not Recovered/Not Resolved]
  - Cataract operation [Unknown]
  - Lung disorder [Not Recovered/Not Resolved]
  - Wrong technique in device usage process [Unknown]
  - Underdose [Unknown]
  - Accidental exposure to product [Unknown]
